FAERS Safety Report 15320619 (Version 3)
Quarter: 2019Q3

REPORT INFORMATION
  Report Type: Report from Study
  Country: US (occurrence: US)
  Receive Date: 20180827
  Receipt Date: 20190718
  Transmission Date: 20191004
  Serious: No
  Sender: FDA-Public Use
  Company Number: US-ROCHE-2174270

PATIENT
  Sex: Male

DRUGS (1)
  1. OCREVUS [Suspect]
     Active Substance: OCRELIZUMAB
     Indication: PRIMARY PROGRESSIVE MULTIPLE SCLEROSIS
     Dosage: RECEIVED SUBSEQUENT INFUSIONS ON 17/JAN/2018, 30/AUG/2018 AND 14/JUN/2019.
     Route: 065
     Dates: start: 20180103

REACTIONS (1)
  - Infected bite [Unknown]
